FAERS Safety Report 6747571-8 (Version None)
Quarter: 2010Q2

REPORT INFORMATION
  Report Type: 
  Country: None (occurrence: None)
  Receive Date: 20100528
  Receipt Date: 20100521
  Transmission Date: 20101027
  Serious: Yes (Other)
  Sender: FDA-Public Use
  Company Number: US-ABBOTT-10P-163-0646150-00

PATIENT
  Sex: Male
  Weight: 149.82 kg

DRUGS (6)
  1. NIASPAN [Suspect]
     Indication: DRUG USE FOR UNKNOWN INDICATION
     Dosage: TAKEN AT BEDTIME
     Dates: start: 20071201, end: 20091201
  2. METFORMIN HYDROCHLORIDE [Concomitant]
     Indication: DRUG USE FOR UNKNOWN INDICATION
  3. GLYBURIDE [Concomitant]
     Indication: DRUG USE FOR UNKNOWN INDICATION
  4. DEPAKOTE [Concomitant]
     Indication: DRUG USE FOR UNKNOWN INDICATION
  5. ASPIRIN [Concomitant]
     Indication: DRUG USE FOR UNKNOWN INDICATION
  6. MULTI-VITAMINS [Concomitant]
     Indication: DRUG USE FOR UNKNOWN INDICATION

REACTIONS (3)
  - KNEE ARTHROPLASTY [None]
  - LOCALISED INFECTION [None]
  - WEIGHT INCREASED [None]
